FAERS Safety Report 4400043-8 (Version None)
Quarter: 2004Q3

REPORT INFORMATION
  Report Type: 
  Country: None (occurrence: None)
  Receive Date: 20040716
  Receipt Date: 20040624
  Transmission Date: 20050211
  Serious: Yes (Hospitalization, Disabling, Other)
  Sender: FDA-Public Use
  Company Number: GB-MERCK-0406GBR00207

PATIENT
  Age: 70 Year
  Sex: Male

DRUGS (8)
  1. ALLOPURINOL [Concomitant]
     Indication: GOUT
     Route: 065
  2. CANDESARTAN [Concomitant]
     Indication: CARDIAC FAILURE
     Route: 065
  3. CARVEDILOL [Concomitant]
     Indication: CARDIAC FAILURE
     Route: 065
  4. FUROSEMIDE [Concomitant]
     Indication: CARDIAC FAILURE
     Route: 065
  5. ZOCOR [Suspect]
     Route: 048
     Dates: start: 20040501, end: 20040617
  6. ZOCOR [Suspect]
     Route: 048
     Dates: end: 20040501
  7. SIMVASTATIN [Concomitant]
     Indication: CARDIAC FAILURE
     Route: 065
     Dates: end: 20040501
  8. WARFARIN [Concomitant]
     Indication: ATRIAL FIBRILLATION
     Route: 065

REACTIONS (10)
  - ALANINE AMINOTRANSFERASE INCREASED [None]
  - ASPARTATE AMINOTRANSFERASE INCREASED [None]
  - BLOOD ALKALINE PHOSPHATASE INCREASED [None]
  - BLOOD BILIRUBIN INCREASED [None]
  - BLOOD CREATINE PHOSPHOKINASE INCREASED [None]
  - BLOOD LACTATE DEHYDROGENASE INCREASED [None]
  - CHEST PAIN [None]
  - GAMMA-GLUTAMYLTRANSFERASE INCREASED [None]
  - LIVER FUNCTION TEST ABNORMAL [None]
  - MYALGIA [None]
